FAERS Safety Report 23276042 (Version 9)
Quarter: 2024Q4

REPORT INFORMATION
  Report Type: Report from Study
  Country: CO (occurrence: CO)
  Receive Date: 20231208
  Receipt Date: 20241217
  Transmission Date: 20250115
  Serious: Yes (Hospitalization, Other)
  Sender: TAKEDA
  Company Number: CO-TAKEDA-2022TUS053676

PATIENT
  Age: 23 Year
  Sex: Female
  Weight: 60 kg

DRUGS (3)
  1. ICATIBANT [Suspect]
     Active Substance: ICATIBANT ACETATE
     Indication: Hereditary angioedema
     Dosage: 15 MILLIGRAM
  2. ICATIBANT [Suspect]
     Active Substance: ICATIBANT ACETATE
     Dosage: UNK
  3. BERINERT [Concomitant]
     Active Substance: HUMAN C1-ESTERASE INHIBITOR
     Dosage: UNK

REACTIONS (8)
  - Procedural hypertension [Not Recovered/Not Resolved]
  - Breast feeding [Unknown]
  - Lactation disorder [Not Recovered/Not Resolved]
  - Weight increased [Not Recovered/Not Resolved]
  - Body height decreased [Not Recovered/Not Resolved]
  - Pregnancy [Recovered/Resolved]
  - Maternal exposure during breast feeding [Unknown]
  - Incorrect dose administered [Unknown]

NARRATIVE: CASE EVENT DATE: 20240316
